FAERS Safety Report 5073473-1 (Version None)
Quarter: 2006Q3

REPORT INFORMATION
  Report Type: 
  Country: None (occurrence: None)
  Receive Date: 20060808
  Receipt Date: 20060802
  Transmission Date: 20061208
  Serious: Yes (Life-Threatening)
  Sender: FDA-Public Use
  Company Number: PHFR2006GB02411

PATIENT
  Age: 7 Month
  Weight: 5.5 kg

DRUGS (8)
  1. SIMULECT [Suspect]
     Indication: HEART TRANSPLANT
     Dosage: 10 MG/DAY
     Route: 042
     Dates: start: 20060615, end: 20060615
  2. CAPTOPRIL [Concomitant]
     Route: 048
  3. CEFTAZIDIME [Concomitant]
     Indication: PROPHYLAXIS
     Dosage: 275 MG/DAY
     Route: 042
     Dates: start: 20060615, end: 20060615
  4. ENOXIMONE [Concomitant]
     Route: 048
     Dates: end: 20060615
  5. FUROSEMIDE [Concomitant]
     Route: 048
  6. MYCOPHENOLATE MOFETIL [Concomitant]
     Dosage: 200 MG/DAY
     Route: 048
     Dates: start: 20060615, end: 20060615
  7. RANITIDINE [Concomitant]
     Route: 048
  8. TEICOPLANIN [Concomitant]
     Indication: PROPHYLAXIS
     Dosage: 50 MG/DAY
     Route: 042
     Dates: start: 20060615, end: 20060615

REACTIONS (5)
  - ERYTHEMA [None]
  - FLUSHING [None]
  - HYPOTENSION [None]
  - HYPOVENTILATION [None]
  - OBSTRUCTIVE AIRWAYS DISORDER [None]
